FAERS Safety Report 9017957 (Version 2)
Quarter: 2013Q1

REPORT INFORMATION
  Report Type: Spontaneous
  Country: US (occurrence: US)
  Receive Date: 20130118
  Receipt Date: 20130211
  Transmission Date: 20140127
  Serious: No
  Sender: FDA-Public Use
  Company Number: US-BIOGENIDEC-2013BI003393

PATIENT
  Age: 60 Year
  Sex: Female

DRUGS (1)
  1. AVONEX [Suspect]
     Indication: MULTIPLE SCLEROSIS
     Route: 030
     Dates: start: 20121219, end: 201301

REACTIONS (3)
  - Abdominal discomfort [Recovered/Resolved]
  - Diarrhoea [Not Recovered/Not Resolved]
  - Influenza like illness [Recovered/Resolved]
